FAERS Safety Report 6184720-7 (Version None)
Quarter: 2009Q2

REPORT INFORMATION
  Report Type: 
  Country: None (occurrence: None)
  Receive Date: 20090508
  Receipt Date: 20090428
  Transmission Date: 20091009
  Serious: Yes (Hospitalization, Other)
  Sender: FDA-Public Use
  Company Number: AU-PFIZER INC-2009197274

PATIENT
  Age: 20 Year

DRUGS (4)
  1. ZELDOX [Suspect]
     Indication: PSYCHOTIC DISORDER
     Dosage: 80MG IN THE MORNING AND 80MG IN THE EVENING
     Route: 048
     Dates: start: 20080801, end: 20090101
  2. ZELDOX [Suspect]
     Indication: SCHIZOPHRENIA
  3. QUILONUM - SLOW RELEASE [Suspect]
     Indication: BIPOLAR DISORDER
     Dosage: 450MG IN THE MORNING AND TWO 450MG IN THE EVENING
     Route: 048
     Dates: start: 20070901, end: 20090301
  4. BENZTROPINE MESYLATE [Concomitant]
     Indication: TREMOR
     Dosage: 1 TO 2MG IN THE EVENING
     Route: 048
     Dates: start: 20080801, end: 20081001

REACTIONS (3)
  - BLEPHAROSPASM [None]
  - DYSKINESIA [None]
  - TREMOR [None]
